FAERS Safety Report 5621971-1 (Version None)
Quarter: 2008Q1

REPORT INFORMATION
  Report Type: 
  Country: None (occurrence: None)
  Receive Date: 20080211
  Receipt Date: 20080131
  Transmission Date: 20080703
  Serious: Yes (Other)
  Sender: FDA-Public Use
  Company Number: B0506825A

PATIENT
  Age: 42 Year
  Sex: Male
  Weight: 75 kg

DRUGS (2)
  1. AVANDAMET [Suspect]
     Route: 048
     Dates: start: 20070302
  2. METFORMIN HCL [Suspect]
     Dosage: 500MG THREE TIMES PER DAY
     Route: 048

REACTIONS (5)
  - ABDOMINAL PAIN UPPER [None]
  - HEADACHE [None]
  - MYALGIA [None]
  - STOMACH DISCOMFORT [None]
  - VERTIGO [None]
